FAERS Safety Report 6507947-0 (Version None)
Quarter: 2009Q4

REPORT INFORMATION
  Report Type: 
  Country: None (occurrence: None)
  Receive Date: 20091221
  Receipt Date: 20091209
  Transmission Date: 20100525
  Serious: Yes (Hospitalization)
  Sender: FDA-Public Use
  Company Number: B0615368A

PATIENT
  Sex: Male

DRUGS (1)
  1. AUGMENTIN '125' [Suspect]
     Indication: DENTAL OPERATION
     Dosage: 2G PER DAY
     Route: 048
     Dates: start: 20091127, end: 20091127

REACTIONS (3)
  - ERYTHEMA [None]
  - PRESYNCOPE [None]
  - VISUAL IMPAIRMENT [None]
